FAERS Safety Report 15730799 (Version 2)
Quarter: 2019Q1

REPORT INFORMATION
  Report Type: Spontaneous
  Country: US (occurrence: US)
  Receive Date: 20181217
  Receipt Date: 20190204
  Transmission Date: 20190417
  Serious: No
  Sender: FDA-Public Use
  Company Number: US-SA-2018SA341432

PATIENT
  Age: 39 Year
  Sex: Female
  Weight: 54.42 kg

DRUGS (1)
  1. DUPIXENT [Suspect]
     Active Substance: DUPILUMAB
     Indication: DERMATITIS ATOPIC
     Dosage: 300 MG, QOW
     Route: 058
     Dates: start: 20181101

REACTIONS (2)
  - Skin lesion [Unknown]
  - Arthralgia [Unknown]

NARRATIVE: CASE EVENT DATE: 20181101
